FAERS Safety Report 26139192 (Version 1)
Quarter: 2025Q4

REPORT INFORMATION
  Report Type: Spontaneous
  Country: EU (occurrence: EU)
  Receive Date: 20251210
  Receipt Date: 20251210
  Transmission Date: 20260118
  Serious: Yes (Hospitalization)
  Sender: BRISTOL-MYERS SQUIBB COMPANY
  Company Number: EU-BRISTOL-MYERS SQUIBB COMPANY-2025-163637

PATIENT
  Age: 51 Year
  Sex: Male
  Weight: 88.4 kg

DRUGS (18)
  1. SOTYKTU [Suspect]
     Active Substance: DEUCRAVACITINIB
     Indication: Psoriasis
     Dosage: 6MG THE MORNING
     Route: 048
     Dates: start: 20251127
  2. CLOZAPINE [Concomitant]
     Active Substance: CLOZAPINE
     Indication: Mental disorder
     Dosage: EVERY NIGHT AT BEDTIME
  3. CLOZAPINE [Concomitant]
     Active Substance: CLOZAPINE
     Dosage: EVERY NIGHT AT BEDTIME
     Route: 048
     Dates: start: 20251120, end: 20251130
  4. LERCANIDIPINE [Concomitant]
     Active Substance: LERCANIDIPINE
     Indication: Hypertension
     Dates: start: 20251001
  5. TERALITHE [Concomitant]
     Active Substance: LITHIUM CARBONATE
     Indication: Mental disorder
     Dosage: 2 TABLETS IN THE MORNING AND EVENING
     Route: 048
     Dates: start: 20251001, end: 20251130
  6. TERALITHE [Concomitant]
     Active Substance: LITHIUM CARBONATE
     Indication: Mental disorder
  7. CLOMIPRAMINE HYDROCHLORIDE [Concomitant]
     Active Substance: CLOMIPRAMINE HYDROCHLORIDE
     Indication: Product used for unknown indication
     Dosage: 0.5 TABLET IN THE MORNING
     Route: 048
     Dates: start: 20251001
  8. DIAZEPAM [Concomitant]
     Active Substance: DIAZEPAM
     Indication: Product used for unknown indication
     Dosage: 0.5 TABLET IN THE MORNING, AT NOON AND IN THE EVENING
     Route: 048
     Dates: start: 20251110
  9. LERCANIDIPINE HYDROCHLORIDE [Concomitant]
     Active Substance: LERCANIDIPINE HYDROCHLORIDE
     Indication: Product used for unknown indication
     Dosage: 2 TABLETS IN THE MORNING
     Route: 048
     Dates: start: 20251001
  10. LORMETAZEPAM [Concomitant]
     Active Substance: LORMETAZEPAM
     Indication: Product used for unknown indication
     Dosage: 2 TABLETS IN THE MORNING
     Route: 048
     Dates: start: 20251001
  11. QUVIVIQ [Concomitant]
     Active Substance: DARIDOREXANT
     Indication: Product used for unknown indication
     Dosage: 1 TABLET AT NIGHT
     Route: 048
     Dates: start: 20251127
  12. ALBUTEROL [Concomitant]
     Active Substance: ALBUTEROL
     Indication: Product used for unknown indication
     Dosage: FROM 1 TO 4 PUFFS PER DAY IF NECESSARY, 4 PUFFS?MAXIMUM PER DOSE, INTERVAL BETWEEN TWO DOSES 1 HOUR
     Route: 048
     Dates: start: 20251001
  13. CLOBEX [Concomitant]
     Active Substance: CLOBETASOL PROPIONATE
     Indication: Product used for unknown indication
     Dosage: 1 SHAMPOO IN THE MORNING
     Route: 003
  14. ENSTILAR [Concomitant]
     Active Substance: BETAMETHASONE DIPROPIONATE\CALCIPOTRIENE HYDRATE
     Indication: Product used for unknown indication
     Dosage: 1 TO 2 APPLICATIONS PER DAY IF NECESSARY
     Route: 003
  15. DESONIDE [Concomitant]
     Active Substance: DESONIDE
     Indication: Product used for unknown indication
     Dosage: 1 APPLICATION IN THE MORNING AND EVENING
     Route: 003
  16. PROTOPIC [Concomitant]
     Active Substance: TACROLIMUS
     Indication: Product used for unknown indication
     Dosage: 1 APPLICATION IN THE MORNING AND EVENING
     Route: 003
  17. BETAMETHASONE DIPROPIONATE [Concomitant]
     Active Substance: BETAMETHASONE DIPROPIONATE
     Indication: Product used for unknown indication
     Dosage: 1 APPLICATION IN THE MORNING
     Route: 003
     Dates: start: 20251127
  18. DAIVOBET [Concomitant]
     Active Substance: BETAMETHASONE DIPROPIONATE\CALCIPOTRIENE
     Indication: Product used for unknown indication
     Dosage: 1 APPLICATION IN THE MORNING AND EVENING
     Route: 003

REACTIONS (10)
  - Dyspnoea [Unknown]
  - Oxygen saturation increased [Unknown]
  - Pyrexia [Unknown]
  - Respiratory disorder [Unknown]
  - Mental disorder [Unknown]
  - Disorientation [Unknown]
  - Cough [Unknown]
  - Asthenia [Unknown]
  - Dysarthria [Unknown]
  - Dysphonia [Unknown]

NARRATIVE: CASE EVENT DATE: 20251129
